FAERS Safety Report 9697258 (Version 1)
Quarter: 2013Q4

REPORT INFORMATION
  Report Type: Spontaneous
  Country: US (occurrence: US)
  Receive Date: 20131120
  Receipt Date: 20131120
  Transmission Date: 20140711
  Serious: Yes (Hospitalization, Other)
  Sender: FDA-Public Use
  Company Number: US-AMGEN-USASP2013081328

PATIENT
  Age: 37 Year
  Sex: Male

DRUGS (2)
  1. ENBREL [Suspect]
     Indication: PSORIATIC ARTHROPATHY
     Dosage: 50 MG, QWK
     Route: 065
     Dates: start: 1999
  2. REMICADE [Concomitant]
     Dosage: 1300 MG, QMO
     Dates: start: 20130215, end: 201308

REACTIONS (18)
  - Osteoarthritis [Recovered/Resolved]
  - Foot deformity [Not Recovered/Not Resolved]
  - Weight increased [Recovered/Resolved]
  - Arthropod bite [Not Recovered/Not Resolved]
  - Scab [Not Recovered/Not Resolved]
  - Drug effect incomplete [Not Recovered/Not Resolved]
  - Procedural pain [Not Recovered/Not Resolved]
  - Musculoskeletal stiffness [Not Recovered/Not Resolved]
  - Back pain [Not Recovered/Not Resolved]
  - Pain in extremity [Not Recovered/Not Resolved]
  - Arthralgia [Not Recovered/Not Resolved]
  - Joint swelling [Not Recovered/Not Resolved]
  - Large intestine polyp [Recovered/Resolved]
  - Inflammation [Recovered/Resolved]
  - Intervertebral disc protrusion [Not Recovered/Not Resolved]
  - Hepatic steatosis [Unknown]
  - Local swelling [Not Recovered/Not Resolved]
  - Apathy [Recovered/Resolved]
